FAERS Safety Report 4351588-0 (Version None)
Quarter: 2004Q2

REPORT INFORMATION
  Report Type: 
  Country: None (occurrence: None)
  Receive Date: 20040429
  Receipt Date: 20040331
  Transmission Date: 20050107
  Serious: No
  Sender: FDA-Public Use
  Company Number: 2004-114551-NL

PATIENT
  Age: 24 Year
  Weight: 72.3 kg

DRUGS (3)
  1. NUVARING [Suspect]
     Indication: CONTRACEPTION
     Dosage: DF DAILY VAGINAL
     Route: 067
     Dates: start: 20040224
  2. NAPROXEN SODIUM [Concomitant]
  3. ASTROGLIDE [Concomitant]

REACTIONS (3)
  - FEELING HOT AND COLD [None]
  - IRRITABILITY [None]
  - METRORRHAGIA [None]
